FAERS Safety Report 23381206 (Version 1)
Quarter: 2024Q1

REPORT INFORMATION
  Report Type: Spontaneous
  Country: CN (occurrence: CN)
  Receive Date: 20240109
  Receipt Date: 20240109
  Transmission Date: 20240410
  Serious: Yes (Hospitalization, Other)
  Sender: FDA-Public Use
  Company Number: None

PATIENT
  Age: 55 Year
  Sex: Female
  Weight: 48 kg

DRUGS (4)
  1. CYCLOPHOSPHAMIDE [Suspect]
     Active Substance: CYCLOPHOSPHAMIDE
     Indication: Breast cancer female
     Dosage: 0.8 G, QD, DILUTED WITH SODIUM CHLORIDE (100 ML)
     Route: 041
     Dates: start: 20231212, end: 20231212
  2. SODIUM CHLORIDE [Suspect]
     Active Substance: SODIUM CHLORIDE
     Indication: Medication dilution
     Dosage: (0.9%, INJECTION), 100 ML, QD, INJECTION, USED TO DILUTE CYCLOPHOSPHAMIDE (0.8 G)
     Route: 041
     Dates: start: 20231212, end: 20231212
  3. SODIUM CHLORIDE [Suspect]
     Active Substance: SODIUM CHLORIDE
     Dosage: 250 ML, QD, INJECTION, USED TO DILUTE EPIRUBICIN HYDROCHLORIDE (130 MG)
     Route: 041
     Dates: start: 20231212, end: 20231212
  4. EPIRUBICIN HYDROCHLORIDE [Suspect]
     Active Substance: EPIRUBICIN HYDROCHLORIDE
     Indication: Breast cancer female
     Dosage: 130 MG, QD, DILUTED WITH SODIUM CHLORIDE (250 ML)
     Route: 041
     Dates: start: 20231212, end: 20231212

REACTIONS (1)
  - Myelosuppression [Recovering/Resolving]

NARRATIVE: CASE EVENT DATE: 20231227
